FAERS Safety Report 19397145 (Version 1)
Quarter: 2021Q2

REPORT INFORMATION
  Report Type: Spontaneous
  Country: US (occurrence: US)
  Receive Date: 20210609
  Receipt Date: 20210609
  Transmission Date: 20210717
  Serious: Yes (Other)
  Sender: FDA-Public Use
  Company Number: US-TEVA-2021-US-1920188

PATIENT
  Sex: Female

DRUGS (1)
  1. HYDRALAZINE HYDROCHLORIDE. [Suspect]
     Active Substance: HYDRALAZINE HYDROCHLORIDE
     Route: 065
     Dates: start: 202105

REACTIONS (5)
  - Diarrhoea [Unknown]
  - Coeliac disease [Unknown]
  - Muscle spasms [Unknown]
  - Dizziness [Unknown]
  - Abnormal faeces [Unknown]

NARRATIVE: CASE EVENT DATE: 202105
